FAERS Safety Report 18118535 (Version 1)
Quarter: 2020Q3

REPORT INFORMATION
  Report Type: Other
  Country: FR (occurrence: FR)
  Receive Date: 20200806
  Receipt Date: 20200806
  Transmission Date: 20201103
  Serious: Yes (Other)
  Sender: FDA-Public Use
  Company Number: FR-CADILA HEALTHCARE LIMITED-FR-ZYDUS-054152

PATIENT

DRUGS (2)
  1. METFORMIN [Suspect]
     Active Substance: METFORMIN HYDROCHLORIDE
     Indication: DIABETES MELLITUS
     Dosage: 850 MG, BID
     Route: 065
     Dates: start: 201908
  2. JANUVIA [Suspect]
     Active Substance: SITAGLIPTIN PHOSPHATE
     Indication: DIABETES MELLITUS
     Dosage: 1 DF, QD
     Route: 065

REACTIONS (9)
  - Product odour abnormal [Unknown]
  - Fatigue [Unknown]
  - Abdominal pain [Unknown]
  - Muscular weakness [Unknown]
  - Dyspnoea [Unknown]
  - Heart rate increased [Unknown]
  - Visual impairment [Unknown]
  - Hypoglycaemia [Unknown]
  - Dizziness [Unknown]
